FAERS Safety Report 9969962 (Version 4)
Quarter: 2015Q1

REPORT INFORMATION
  Report Type: Report from Study
  Country: TH (occurrence: TH)
  Receive Date: 20140306
  Receipt Date: 20150127
  Transmission Date: 20150721
  Serious: Yes (Hospitalization, Disabling)
  Sender: FDA-Public Use
  Company Number: TH-ROCHE-1272887

PATIENT
  Age: 58 Year
  Sex: Male
  Weight: 59 kg

DRUGS (5)
  1. CYCLOPHOSPHAMIDE. [Suspect]
     Active Substance: CYCLOPHOSPHAMIDE
     Indication: DIFFUSE LARGE B-CELL LYMPHOMA
     Dosage: DOSE ON 12/FEB/2013: 1267.5MG?MOST RECENT DOSE PRIOR TO ONSET OF CMV RETINITIS: 1200MG ON 30/APR/201
     Route: 042
     Dates: start: 20121120, end: 20130430
  2. DOXORUBICIN [Suspect]
     Active Substance: DOXORUBICIN
     Indication: DIFFUSE LARGE B-CELL LYMPHOMA
     Dosage: DOSE ON 12/FEB/2013: 84.5MG?MOST RECENT DOSE PRIOR TO ONSET OF CMV RETINITIS: 80MG ON 30/APR/2013
     Route: 042
     Dates: start: 20121120, end: 20130430
  3. VINCRISTIN [Suspect]
     Active Substance: VINCRISTINE
     Indication: DIFFUSE LARGE B-CELL LYMPHOMA
     Dosage: MOST RECENT DOSE PRIOR TO ONSET OF CMV RETINITIS: 30/APR/2013
     Route: 050
     Dates: start: 20121120, end: 20130430
  4. PREDNISONE. [Suspect]
     Active Substance: PREDNISONE
     Indication: DIFFUSE LARGE B-CELL LYMPHOMA
     Dosage: MOST RECENT DOSE PRIOR TO ONSET OF CMV RETINITIS: 04/MAY/2013
     Route: 048
     Dates: start: 20121120, end: 20130504
  5. OBINUTUZUMAB [Suspect]
     Active Substance: OBINUTUZUMAB
     Indication: DIFFUSE LARGE B-CELL LYMPHOMA
     Dosage: DOSE ON 12/FEB/2013: CONCENTRATION 4MG/ML, VOLUME 250ML?MOST RECENT DOSE OF OBINUTUZUMAB PRIOR TO ON
     Route: 042
     Dates: start: 20121120, end: 20130430

REACTIONS (2)
  - Uveitis [Recovered/Resolved]
  - Cytomegalovirus chorioretinitis [Recovered/Resolved with Sequelae]

NARRATIVE: CASE EVENT DATE: 20130805
